FAERS Safety Report 8181655-5 (Version None)
Quarter: 2012Q1

REPORT INFORMATION
  Report Type: 
  Country: None (occurrence: None)
  Receive Date: 20120302
  Receipt Date: 20110601
  Transmission Date: 20120608
  Serious: Yes (Other)
  Sender: FDA-Public Use
  Company Number: BR-US-EMD SERONO, INC.-7062105

PATIENT
  Sex: Female

DRUGS (7)
  1. FOLIC ACID [Concomitant]
  2. MANTIDAN [Concomitant]
  3. OMEPRAZOLE [Concomitant]
  4. DAFORIN [Concomitant]
  5. PREDNISONE TAB [Concomitant]
  6. REBIF [Suspect]
     Indication: RELAPSING-REMITTING MULTIPLE SCLEROSIS
     Dates: start: 20110217
  7. HIDROMED (HYDROCHLOROTHIAZIDE) [Concomitant]

REACTIONS (1)
  - CANDIDIASIS [None]
